FAERS Safety Report 24867757 (Version 3)
Quarter: 2025Q1

REPORT INFORMATION
  Report Type: Spontaneous
  Country: US (occurrence: US)
  Receive Date: 20250121
  Receipt Date: 20250317
  Transmission Date: 20250409
  Serious: No
  Sender: ROCHE
  Company Number: US-ROCHE-10000182065

PATIENT
  Sex: Female

DRUGS (2)
  1. XOLAIR PFS [Suspect]
     Active Substance: OMALIZUMAB
     Indication: Idiopathic urticaria
     Dosage: STRENGTH: 150 MG/ML
     Route: 058
     Dates: start: 202209
  2. XOLAIR PFS [Suspect]
     Active Substance: OMALIZUMAB

REACTIONS (4)
  - Injection site swelling [Recovered/Resolved]
  - Erythema [Recovered/Resolved]
  - Off label use [Unknown]
  - Condition aggravated [Unknown]
